FAERS Safety Report 14546270 (Version 2)
Quarter: 2018Q1

REPORT INFORMATION
  Report Type: Report from Study
  Country: None (occurrence: US)
  Receive Date: 20180219
  Receipt Date: 20180222
  Transmission Date: 20180509
  Serious: Yes (Hospitalization, Other)
  Sender: FDA-Public Use
  Company Number: US-ABBVIE-18K-163-2257682-00

PATIENT
  Sex: Female

DRUGS (4)
  1. HUMIRA [Suspect]
     Active Substance: ADALIMUMAB
     Route: 058
  2. HUMIRA [Suspect]
     Active Substance: ADALIMUMAB
     Dosage: DAY 1
     Route: 058
     Dates: start: 20171216, end: 20171216
  3. HUMIRA [Suspect]
     Active Substance: ADALIMUMAB
     Dosage: DAY 15
     Route: 058
     Dates: start: 20171230, end: 20171230
  4. HUMIRA [Suspect]
     Active Substance: ADALIMUMAB
     Indication: CROHN^S DISEASE
     Route: 058
     Dates: start: 2015

REACTIONS (15)
  - Mobility decreased [Unknown]
  - Disorientation [Unknown]
  - Diarrhoea [Recovering/Resolving]
  - Defaecation urgency [Unknown]
  - Injection site pain [Unknown]
  - Loss of personal independence in daily activities [Unknown]
  - Insomnia [Unknown]
  - Infection [Unknown]
  - Short-bowel syndrome [Unknown]
  - Frequent bowel movements [Recovering/Resolving]
  - Nausea [Unknown]
  - Abdominal pain upper [Recovering/Resolving]
  - Intestinal obstruction [Unknown]
  - Feeling cold [Unknown]
  - Weight decreased [Unknown]

NARRATIVE: CASE EVENT DATE: 2015
